FAERS Safety Report 9630209 (Version 1)
Quarter: 2013Q4

REPORT INFORMATION
  Report Type: Report from Study
  Country: US (occurrence: US)
  Receive Date: 20131017
  Receipt Date: 20131017
  Transmission Date: 20140711
  Serious: Yes (Hospitalization)
  Sender: FDA-Public Use
  Company Number: GXBR2013US001810

PATIENT
  Age: 2 Year
  Sex: Male
  Weight: 12.7 kg

DRUGS (11)
  1. OMNITROPE [Suspect]
     Indication: BODY HEIGHT BELOW NORMAL
     Dosage: 0.5 MG, QD
     Dates: start: 20130912
  2. OMNITROPE [Suspect]
     Dosage: 0.5 MG, QD
     Dates: end: 20131004
  3. SODIUM CHLORIDE [Concomitant]
     Dosage: UNK DF, UNK
  4. ZANTAC [Concomitant]
     Dosage: UNK DF, UNK
  5. IRON [Concomitant]
     Dosage: UNK DF, UNK
  6. VITAMIN B [Concomitant]
     Dosage: UNK DF, UNK
  7. BICITRA                            /00586801/ [Concomitant]
     Dosage: UNK DF, UNK
  8. POTASSIUM CHLORIDE [Concomitant]
     Dosage: UNK DF, UNK
  9. PHOSPHORUS [Concomitant]
     Dosage: UNK DF, UNK
  10. CALCITRIOL [Concomitant]
     Dosage: UNK DF, UNK
  11. MULTI-VIT [Concomitant]
     Dosage: UNK DF, UNK

REACTIONS (6)
  - Rhinovirus infection [Unknown]
  - Nasopharyngitis [Unknown]
  - Aggression [Recovered/Resolved]
  - Abnormal behaviour [Recovered/Resolved]
  - Micturition disorder [Recovered/Resolved]
  - Injection site pain [Recovered/Resolved]
